FAERS Safety Report 24708792 (Version 1)
Quarter: 2024Q4

REPORT INFORMATION
  Report Type: Spontaneous
  Country: US (occurrence: US)
  Receive Date: 20241207
  Receipt Date: 20241207
  Transmission Date: 20250114
  Serious: Yes (Hospitalization, Other)
  Sender: AMGEN
  Company Number: US-AMGEN-USASP2024235286

PATIENT
  Age: 20 Year
  Sex: Female

DRUGS (3)
  1. ADALIMUMAB [Suspect]
     Active Substance: ADALIMUMAB
     Indication: Uveitis
     Dosage: 40 MILLIGRAM, Q2WK
     Route: 065
  2. INFLIXIMAB [Suspect]
     Active Substance: INFLIXIMAB
     Indication: Uveitis
     Dosage: 11 MILLIGRAM/KILOGRAM, QMO
     Route: 065
  3. METHOTREXATE [Concomitant]
     Active Substance: METHOTREXATE
     Indication: Uveitis
     Dosage: 25 MILLIGRAM, QD
     Route: 048

REACTIONS (38)
  - Pneumonia [Unknown]
  - Pulmonary embolism [Unknown]
  - Cervical spinal stenosis [Unknown]
  - Myelopathy [Unknown]
  - Mitral valve thickening [Unknown]
  - Mitral valve dysplasia [Unknown]
  - Mitral valve incompetence [Unknown]
  - Aortic arteriosclerosis [Unknown]
  - Migraine [Recovering/Resolving]
  - Joint effusion [Unknown]
  - Arthralgia [Unknown]
  - Chest pain [Unknown]
  - Dyspnoea [Unknown]
  - Myalgia [Unknown]
  - Gait disturbance [Unknown]
  - Myoclonus [Unknown]
  - Dysarthria [Unknown]
  - Muscular weakness [Unknown]
  - Trismus [Unknown]
  - Tension headache [Unknown]
  - Cough [Unknown]
  - Dysphagia [Unknown]
  - Weight decreased [Unknown]
  - Hypophagia [Unknown]
  - Salivary hypersecretion [Unknown]
  - Anxiety [Unknown]
  - Middle insomnia [Unknown]
  - Off label use [Unknown]
  - Knee deformity [Unknown]
  - Intervertebral disc protrusion [Unknown]
  - Cerebral ventricle dilatation [Unknown]
  - Peripheral motor neuropathy [Unknown]
  - Fall [Unknown]
  - Hyperreflexia [Unknown]
  - Clonus [Unknown]
  - Breathing-related sleep disorder [Unknown]
  - Ataxia [Unknown]
  - Electrocardiogram T wave abnormal [Unknown]
